FAERS Safety Report 6107414-2 (Version None)
Quarter: 2009Q1

REPORT INFORMATION
  Report Type: 
  Country: None (occurrence: None)
  Receive Date: 20090309
  Receipt Date: 20090227
  Transmission Date: 20090719
  Serious: Yes (Hospitalization, Other)
  Sender: FDA-Public Use
  Company Number: AT-ASTRAZENECA-2009PK00748

PATIENT
  Age: 49 Year
  Sex: Female
  Weight: 62 kg

DRUGS (7)
  1. NOLVADEX [Suspect]
     Indication: BREAST CANCER
     Route: 048
     Dates: start: 20040210, end: 20070511
  2. ZOLADEX [Concomitant]
     Indication: BREAST CANCER
     Route: 058
     Dates: start: 20040210, end: 20070511
  3. CIPRALEX [Concomitant]
     Indication: DEPRESSION
  4. XANOR [Concomitant]
     Indication: DEPRESSION
  5. TRITTICO [Concomitant]
     Indication: DEPRESSION
  6. DIOVAN HCT [Concomitant]
     Indication: HYPERTENSION
  7. ASPIRIN [Concomitant]
     Indication: PROPHYLAXIS

REACTIONS (3)
  - ADENOMYOSIS [None]
  - MENORRHAGIA [None]
  - UTERINE LEIOMYOMA [None]
